FAERS Safety Report 25947233 (Version 1)
Quarter: 2025Q4

REPORT INFORMATION
  Report Type: Report from Study
  Country: GB (occurrence: GB)
  Receive Date: 20251022
  Receipt Date: 20251022
  Transmission Date: 20260117
  Serious: Yes (Other)
  Sender: SAMSUNG BIOEPIS
  Company Number: GB-SAMSUNG BIOEPIS-SB-2025-29320

PATIENT
  Age: 70 Year
  Sex: Female

DRUGS (2)
  1. ETANERCEPT [Suspect]
     Active Substance: ETANERCEPT
     Indication: Rheumatoid arthritis
     Dosage: 50MG EW;
     Route: 058
     Dates: start: 20250723
  2. ETANERCEPT [Suspect]
     Active Substance: ETANERCEPT
     Dosage: 50MG EW;
     Route: 058

REACTIONS (9)
  - Rheumatoid arthritis [Unknown]
  - Fatigue [Unknown]
  - Lethargy [Unknown]
  - Headache [Unknown]
  - Illness [Unknown]
  - Nausea [Unknown]
  - Pain in extremity [Unknown]
  - Decreased appetite [Unknown]
  - Drug intolerance [Unknown]
